FAERS Safety Report 8997790 (Version 1)
Quarter: 2013Q1

REPORT INFORMATION
  Report Type: Spontaneous
  Country: IT (occurrence: IT)
  Receive Date: 20130104
  Receipt Date: 20130104
  Transmission Date: 20140127
  Serious: Yes (Other)
  Sender: FDA-Public Use
  Company Number: IT-ASTRAZENECA-2012SE96493

PATIENT
  Age: 32 Year
  Sex: Female

DRUGS (3)
  1. BUDESONIDE, FORMOTEROL FUMARATE [Suspect]
     Indication: ASTHMA
     Dosage: 4 DF, DAILY
     Route: 055
     Dates: start: 20120304, end: 20120304
  2. TACHIPIRINA (PARACETAMOL) [Concomitant]
  3. CLAVULIN (AMOXICILLIN/POTASSIUM CLAVULANATE) [Concomitant]

REACTIONS (2)
  - Dyspnoea [Recovered/Resolved]
  - Chest discomfort [Recovered/Resolved]
